FAERS Safety Report 6257164-7 (Version None)
Quarter: 2009Q3

REPORT INFORMATION
  Report Type: 
  Country: None (occurrence: None)
  Receive Date: 20090706
  Receipt Date: 20090625
  Transmission Date: 20100115
  Serious: Yes (Hospitalization, Other)
  Sender: FDA-Public Use
  Company Number: BR-BAYER-200811926LA

PATIENT
  Age: 32 Year
  Sex: Female

DRUGS (3)
  1. BETAFERON [Suspect]
     Indication: MULTIPLE SCLEROSIS
     Dosage: TOTAL DAILY DOSE: 9.6 MIU
     Route: 058
     Dates: start: 20060101
  2. TYLENOL (CAPLET) [Concomitant]
     Indication: DRUG USE FOR UNKNOWN INDICATION
  3. CORTICOID [Concomitant]
     Indication: ALLERGIC BRONCHITIS
     Route: 045
     Dates: start: 20090401

REACTIONS (7)
  - EYE PAIN [None]
  - FACIAL PAIN [None]
  - HALLUCINATION, VISUAL [None]
  - MULTIPLE SCLEROSIS [None]
  - MULTIPLE SCLEROSIS RELAPSE [None]
  - PAIN IN EXTREMITY [None]
  - PARANASAL CYST [None]
